FAERS Safety Report 9705486 (Version 2)
Quarter: 2013Q4

REPORT INFORMATION
  Report Type: Spontaneous
  Country: FR (occurrence: FR)
  Receive Date: 20131122
  Receipt Date: 20131122
  Transmission Date: 20140711
  Serious: Yes (Hospitalization)
  Sender: FDA-Public Use
  Company Number: FR-ABBVIE-13P-056-1126451-00

PATIENT
  Age: 50 Year
  Sex: Female

DRUGS (7)
  1. HUMIRA [Suspect]
     Indication: PSORIASIS
     Dosage: 80 MG FOR INDUCTION DOSE THEN 40 MG EOW
     Route: 058
     Dates: start: 20130417, end: 201305
  2. CLINDAMYCINE [Suspect]
     Indication: MASTITIS
     Dates: start: 201306
  3. APROVEL [Concomitant]
     Indication: PRODUCT USED FOR UNKNOWN INDICATION
  4. PANTOPRAZOLE [Concomitant]
     Indication: PRODUCT USED FOR UNKNOWN INDICATION
  5. CONTALAX [Concomitant]
     Indication: PRODUCT USED FOR UNKNOWN INDICATION
  6. ALVERINE (METEOSPASMYL) [Concomitant]
     Indication: PRODUCT USED FOR UNKNOWN INDICATION
  7. XYZALL [Concomitant]
     Indication: PRODUCT USED FOR UNKNOWN INDICATION

REACTIONS (8)
  - Mammary fistula [Not Recovered/Not Resolved]
  - Mastitis [Not Recovered/Not Resolved]
  - Pustular psoriasis [Recovered/Resolved]
  - Mastitis [Not Recovered/Not Resolved]
  - Mastitis [Unknown]
  - Breast neoplasm [Unknown]
  - Drug ineffective [Unknown]
  - Skin oedema [Unknown]
